FAERS Safety Report 7207461-3 (Version None)
Quarter: 2011Q1

REPORT INFORMATION
  Report Type: 
  Country: None (occurrence: None)
  Receive Date: 20110103
  Receipt Date: 20101217
  Transmission Date: 20110831
  Serious: Yes (Hospitalization)
  Sender: FDA-Public Use
  Company Number: PHHY2010NZ86420

PATIENT
  Sex: Male

DRUGS (3)
  1. AMISULPRIDE [Concomitant]
     Dosage: UNK
  2. CLOZAPINE [Suspect]
     Dosage: 650 MG PER DAY
     Dates: start: 20080101
  3. SIMVASTATIN [Concomitant]
     Dosage: UNK

REACTIONS (2)
  - MYOSITIS [None]
  - BLOOD CREATINE PHOSPHOKINASE INCREASED [None]
